FAERS Safety Report 22017461 (Version 1)
Quarter: 2023Q1

REPORT INFORMATION
  Report Type: Spontaneous
  Country: TR (occurrence: TR)
  Receive Date: 20230221
  Receipt Date: 20230221
  Transmission Date: 20230418
  Serious: Yes (Death, Other)
  Sender: FDA-Public Use
  Company Number: TR-PFM-2023-01005

PATIENT

DRUGS (3)
  1. PROPRANOLOL [Suspect]
     Active Substance: PROPRANOLOL HYDROCHLORIDE
     Indication: Pulmonary artery stenosis
     Dosage: UNK
     Route: 065
  2. PROPRANOLOL [Suspect]
     Active Substance: PROPRANOLOL HYDROCHLORIDE
     Indication: Off label use
  3. PROSTAGLANDIN E1 [Suspect]
     Active Substance: ALPROSTADIL
     Indication: Pulmonary artery stenosis
     Dosage: UNK
     Route: 065

REACTIONS (7)
  - Death neonatal [Fatal]
  - Cyanosis [Unknown]
  - Oxygen saturation decreased [Unknown]
  - Hypotension [Unknown]
  - Product administered to patient of inappropriate age [Unknown]
  - Product use in unapproved indication [Unknown]
  - Off label use [Unknown]
